FAERS Safety Report 5305364-2 (Version None)
Quarter: 2007Q2

REPORT INFORMATION
  Report Type: 
  Country: None (occurrence: None)
  Receive Date: 20070416
  Receipt Date: 20070409
  Transmission Date: 20071010
  Serious: Yes (Death)
  Sender: FDA-Public Use
  Company Number: 2007SP006648

PATIENT

DRUGS (2)
  1. TEMODAL [Suspect]
     Indication: DRUG USE FOR UNKNOWN INDICATION
     Dosage: ; PO
     Route: 048
  2. FERON (INTERFERON BETA) [Suspect]
     Indication: DRUG USE FOR UNKNOWN INDICATION

REACTIONS (3)
  - INFECTION [None]
  - INTERSTITIAL LUNG DISEASE [None]
  - LYMPHOCYTE COUNT DECREASED [None]
